FAERS Safety Report 5829471-0 (Version None)
Quarter: 2008Q3

REPORT INFORMATION
  Report Type: 
  Country: None (occurrence: None)
  Receive Date: 20080729
  Receipt Date: 20080715
  Transmission Date: 20090109
  Serious: Yes (Hospitalization, Other)
  Sender: FDA-Public Use
  Company Number: 2008S1012476

PATIENT
  Age: 30 Year
  Sex: Female
  Weight: 78.9259 kg

DRUGS (9)
  1. ZONISAMIDE CAPSULES (100 MG) [Suspect]
     Indication: CONVULSION
     Dosage: 300 MG; TWICE A DAY; ORAL
     Route: 048
     Dates: end: 20080614
  2. ZONISAMIDE CAPSULES (100 MG) [Suspect]
     Indication: CONVULSION
     Dosage: 300 MG; TWICE A DAY, ORAL
     Route: 048
     Dates: start: 20051019, end: 20080101
  3. PENTASA (CON.) [Concomitant]
  4. DILANTIN /0001401/ (CON.) [Concomitant]
  5. SEROQUEL /01270901/ (CON.) [Concomitant]
  6. EFFEXOR XR (CON.) [Concomitant]
  7. LEVOTHYROXINE (CON.) [Concomitant]
  8. OXYCODONE (CON.) [Concomitant]
  9. SOMA (CON.) [Concomitant]

REACTIONS (9)
  - CHOKING [None]
  - JOINT SWELLING [None]
  - LOSS OF CONSCIOUSNESS [None]
  - MEMORY IMPAIRMENT [None]
  - MUSCLE SPASMS [None]
  - OEDEMA PERIPHERAL [None]
  - RESPIRATORY FAILURE [None]
  - SOMNOLENCE [None]
  - WEIGHT DECREASED [None]
